FAERS Safety Report 9025152 (Version 3)
Quarter: 2013Q2

REPORT INFORMATION
  Report Type: Spontaneous
  Country: US (occurrence: US)
  Receive Date: 20130122
  Receipt Date: 20130522
  Transmission Date: 20140414
  Serious: Yes (Other)
  Sender: FDA-Public Use
  Company Number: US-009507513-1301USA008177

PATIENT
  Age: 26 Year
  Sex: Female
  Weight: 57.6 kg

DRUGS (5)
  1. NUVARING [Suspect]
     Indication: CONTRACEPTION
     Dosage: 1 RING FOR 3 WEEKS FOLLOWED BY A WEEK FREE BREAK
     Route: 067
     Dates: start: 20090505
  2. IRON (UNSPECIFIED) [Concomitant]
  3. TYLENOL [Concomitant]
     Indication: HEADACHE
  4. ADVIL [Concomitant]
     Indication: HEADACHE
  5. MOTRIN [Concomitant]
     Indication: HEADACHE

REACTIONS (7)
  - Ectopic pregnancy [Recovered/Resolved]
  - Abortion of ectopic pregnancy [Unknown]
  - Unintended pregnancy [Recovered/Resolved]
  - Metrorrhagia [Unknown]
  - Vulvovaginitis trichomonal [Unknown]
  - Breast pain [Unknown]
  - Vulvovaginitis trichomonal [Unknown]
